FAERS Safety Report 4467634-X (Version None)
Quarter: 2004Q4

REPORT INFORMATION
  Report Type: 
  Country: None (occurrence: None)
  Receive Date: 20041001
  Receipt Date: 20040915
  Transmission Date: 20050328
  Serious: Yes (Death)
  Sender: FDA-Public Use
  Company Number: 2004JP001696

PATIENT
  Age: 24 Year
  Sex: Male

DRUGS (4)
  1. PROGRAF [Suspect]
     Indication: BONE MARROW TRANSPLANT
  2. AZATIOPRIN [Concomitant]
  3. MYCOPHENOLATE MOFETIL (MYCOPHENOLATE MOFETIL) [Concomitant]
  4. PREDNISOLONE [Concomitant]

REACTIONS (2)
  - ATYPICAL MYCOBACTERIAL INFECTION [None]
  - LIVER DISORDER [None]
